FAERS Safety Report 22165199 (Version 2)
Quarter: 2024Q3

REPORT INFORMATION
  Report Type: Spontaneous
  Country: ZA (occurrence: ZA)
  Receive Date: 20230403
  Receipt Date: 20240711
  Transmission Date: 20241016
  Serious: No
  Sender: ASTELLAS
  Company Number: ZA-ASTELLAS-2023US010130

PATIENT
  Sex: Male

DRUGS (3)
  1. TACROLIMUS [Suspect]
     Active Substance: TACROLIMUS
     Indication: Heart transplant
     Dosage: UNK UNK, UNKNOWN FREQ.
     Route: 065
  2. TACROLIMUS [Suspect]
     Active Substance: TACROLIMUS
     Dosage: UNK UNK, UNKNOWN FREQ. (REDUCED DOSE)
     Route: 065
  3. BARIUM [Concomitant]
     Active Substance: BARIUM
     Indication: Diagnostic procedure
     Dosage: UNK UNK, UNKNOWN FREQ.
     Route: 065

REACTIONS (2)
  - Immunosuppressant drug level increased [Not Recovered/Not Resolved]
  - Off label use [Unknown]
